FAERS Safety Report 5862726-2 (Version None)
Quarter: 2008Q3

REPORT INFORMATION
  Report Type: 
  Country: None (occurrence: None)
  Receive Date: 20080818
  Receipt Date: 20080421
  Transmission Date: 20090109
  Serious: No
  Sender: FDA-Public Use
  Company Number: WAES 0804USA04458

PATIENT
  Age: 59 Year
  Sex: Female

DRUGS (7)
  1. JANUVIA [Suspect]
     Indication: TYPE 2 DIABETES MELLITUS
     Dosage: 100 MG/DAILY/PO
     Route: 048
     Dates: start: 20070101, end: 20080419
  2. ALTACE [Concomitant]
  3. LASIX [Concomitant]
  4. SYNTHROID [Concomitant]
  5. THEO-DUR [Concomitant]
  6. POTASSIUM (UNSPECIFIED) [Concomitant]
  7. PREDNISONE [Concomitant]

REACTIONS (6)
  - DYSPHAGIA [None]
  - EAR INFECTION [None]
  - ERYTHEMA [None]
  - NASAL CONGESTION [None]
  - OROPHARYNGEAL PAIN [None]
  - SWELLING FACE [None]
